FAERS Safety Report 12269434 (Version 1)
Quarter: 2016Q2

REPORT INFORMATION
  Report Type: Report from Study
  Country: CN (occurrence: CN)
  Receive Date: 20160414
  Receipt Date: 20160414
  Transmission Date: 20160815
  Serious: Yes (Hospitalization)
  Sender: FDA-Public Use
  Company Number: PHHY2016CN048715

PATIENT
  Sex: Male
  Weight: 80 kg

DRUGS (4)
  1. EXFORGE [Suspect]
     Active Substance: AMLODIPINE BESYLATE\VALSARTAN
     Indication: HYPERTENSION
     Dosage: UNK (AMLODIPINE 5 MG, VALSARTAN 80 MG)
     Route: 048
     Dates: start: 201107, end: 20141106
  2. ASPIRINE [Concomitant]
     Active Substance: ASPIRIN
     Indication: MYOCARDIAL INFARCTION
     Dosage: 0.1 G, QD
     Route: 065
     Dates: start: 20140416, end: 20140420
  3. CINEPAZIDE MALEATE [Concomitant]
     Active Substance: CINEPAZIDE MALEATE
     Indication: CORONARY ARTERY DISEASE
     Dosage: 320 MG, QD
     Route: 065
     Dates: start: 20140415, end: 20140421
  4. ISOSORBID DINITRATE [Concomitant]
     Indication: ANGINA PECTORIS
     Dosage: 2 G, QD
     Route: 065
     Dates: start: 20140415, end: 20150421

REACTIONS (4)
  - Choking sensation [Recovering/Resolving]
  - Arteriosclerosis coronary artery [Recovering/Resolving]
  - Angina pectoris [Recovering/Resolving]
  - Chest pain [Recovering/Resolving]
